FAERS Safety Report 7981232-2 (Version None)
Quarter: 2011Q4

REPORT INFORMATION
  Report Type: 
  Country: None (occurrence: None)
  Receive Date: 20111215
  Receipt Date: 20111213
  Transmission Date: 20120403
  Serious: No
  Sender: FDA-Public Use
  Company Number: US-PFIZER INC-2011272416

PATIENT
  Age: 32 Year
  Sex: Female

DRUGS (2)
  1. METHADONE [Concomitant]
     Dosage: UNK
  2. DEPO-PROVERA [Suspect]
     Indication: CONTRACEPTION
     Dosage: UNK

REACTIONS (2)
  - ABDOMINAL DISTENSION [None]
  - GALACTORRHOEA [None]
